FAERS Safety Report 4804114-3 (Version None)
Quarter: 2005Q4

REPORT INFORMATION
  Report Type: 
  Country: None (occurrence: None)
  Receive Date: 20051014
  Receipt Date: 20050929
  Transmission Date: 20060501
  Serious: Yes (Other)
  Sender: FDA-Public Use
  Company Number: 05-000779

PATIENT
  Age: 23 Year
  Sex: Female
  Weight: 59 kg

DRUGS (1)
  1. DORYX [Suspect]
     Indication: ACNE
     Dosage: 100 MG, BID, ORAL
     Route: 048
     Dates: start: 20050813, end: 20050820

REACTIONS (6)
  - CHEST PAIN [None]
  - DYSPNOEA [None]
  - EROSIVE OESOPHAGITIS [None]
  - GASTRITIS [None]
  - OESOPHAGEAL PAIN [None]
  - OESOPHAGEAL SPASM [None]
